FAERS Safety Report 19432346 (Version 3)
Quarter: 2021Q4

REPORT INFORMATION
  Report Type: Spontaneous
  Country: US (occurrence: US)
  Receive Date: 20210617
  Receipt Date: 20211018
  Transmission Date: 20220303
  Serious: No
  Sender: FDA-Public Use
  Company Number: US-VERTEX PHARMACEUTICALS-2021-009132

PATIENT
  Age: 16 Year
  Sex: Female

DRUGS (1)
  1. TRIKAFTA [Suspect]
     Active Substance: ELEXACAFTOR\IVACAFTOR\TEZACAFTOR
     Indication: Cystic fibrosis
     Dosage: UNSPECIFIED FREQUENCY
     Route: 048
     Dates: start: 20191208, end: 20210922

REACTIONS (2)
  - Amnesia [Unknown]
  - Tic [Unknown]

NARRATIVE: CASE EVENT DATE: 20210301
